FAERS Safety Report 12104003 (Version 2)
Quarter: 2016Q1

REPORT INFORMATION
  Report Type: Report from Study
  Country: GB (occurrence: GB)
  Receive Date: 20160223
  Receipt Date: 20160303
  Transmission Date: 20160526
  Serious: Yes (Life-Threatening, Other)
  Sender: FDA-Public Use
  Company Number: GB-009507513-1602GBR010214

PATIENT

DRUGS (4)
  1. VELCADE [Suspect]
     Active Substance: BORTEZOMIB
     Indication: PLASMA CELL MYELOMA RECURRENT
     Dosage: 1.3 MG/M2, DAYS 1, 4, 8 AND 11
     Route: 058
  2. DEXAMETHASONE. [Suspect]
     Active Substance: DEXAMETHASONE
     Indication: PLASMA CELL MYELOMA RECURRENT
     Dosage: 20 MG, DAYS 1, 2, 4, 5, 8, 9, 11 AND 12 OF A 21 DAY CYCLE OF 8 CYCLES
     Route: 048
  3. VORINOSTAT [Suspect]
     Active Substance: VORINOSTAT
     Indication: PLASMA CELL MYELOMA RECURRENT
     Dosage: 400 MG, DAYS 1-4, 8-11 AND 15-18, 8 CYCLES
     Route: 048
  4. VORINOSTAT [Suspect]
     Active Substance: VORINOSTAT
     Dosage: 400 MG, DAYS 1-4 AND 15-18 OF A 28 DAY CYCLE)
     Route: 048

REACTIONS (6)
  - Thrombocytopenia [Unknown]
  - Neutropenia [Unknown]
  - Product use issue [Unknown]
  - Diarrhoea [Unknown]
  - Fatigue [Unknown]
  - Anaemia [Unknown]
